FAERS Safety Report 14931550 (Version 2)
Quarter: 2018Q3

REPORT INFORMATION
  Report Type: Spontaneous
  Country: JP (occurrence: JP)
  Receive Date: 20180524
  Receipt Date: 20180817
  Transmission Date: 20181010
  Serious: Yes (Hospitalization, Other)
  Sender: FDA-Public Use
  Company Number: JP-EMD SERONO-9028237

PATIENT
  Age: 30 Year
  Sex: Female
  Weight: 54 kg

DRUGS (8)
  1. DUPHASTON [Concomitant]
     Active Substance: DYDROGESTERONE
     Indication: PRODUCT USED FOR UNKNOWN INDICATION
     Route: 048
     Dates: start: 20170224, end: 20170228
  2. CABASER [Concomitant]
     Active Substance: CABERGOLINE
     Indication: PRODUCT USED FOR UNKNOWN INDICATION
     Route: 048
     Dates: start: 20170213, end: 20170220
  3. ESTRANA [Concomitant]
     Active Substance: ESTRADIOL
     Indication: PRODUCT USED FOR UNKNOWN INDICATION
     Dosage: 1.44 (UNSPECIFIED UNITS), ESTRANA TAPE WAS CHANGED EVERY 48 HOURS.
     Route: 061
     Dates: start: 20170213, end: 20170228
  4. GONAL?F RFF [Suspect]
     Active Substance: FOLLITROPIN
     Indication: INFERTILITY FEMALE
     Route: 058
     Dates: start: 201701, end: 201701
  5. GONATROPIN [Concomitant]
     Indication: PRODUCT USED FOR UNKNOWN INDICATION
     Route: 030
     Dates: start: 20170128, end: 20170128
  6. GANIREST [Suspect]
     Active Substance: GANIRELIX ACETATE
     Indication: PRODUCT USED FOR UNKNOWN INDICATION
     Route: 058
     Dates: start: 20170125, end: 20170128
  7. LUTINUS [Concomitant]
     Active Substance: PROGESTERONE
     Indication: PRODUCT USED FOR UNKNOWN INDICATION
     Route: 067
     Dates: start: 20170220, end: 20170228
  8. GONAL?F [Suspect]
     Active Substance: FOLLITROPIN
     Indication: INFERTILITY FEMALE
     Route: 058
     Dates: start: 20170120, end: 20170128

REACTIONS (3)
  - Blood pressure diastolic decreased [Unknown]
  - Cerebral infarction [Unknown]
  - Intracranial artery dissection [Unknown]

NARRATIVE: CASE EVENT DATE: 2017
